FAERS Safety Report 19581336 (Version 4)
Quarter: 2021Q3

REPORT INFORMATION
  Report Type: Report from Study
  Country: US (occurrence: US)
  Receive Date: 20210720
  Receipt Date: 20210923
  Transmission Date: 20211014
  Serious: No
  Sender: FDA-Public Use
  Company Number: US-B.I. PHARMACEUTICALS,INC./RIDGEFIELD-2021-BI-116220

PATIENT
  Sex: Male

DRUGS (2)
  1. OFEV [Suspect]
     Active Substance: NINTEDANIB
     Indication: IDIOPATHIC PULMONARY FIBROSIS
  2. OFEV [Suspect]
     Active Substance: NINTEDANIB
     Indication: INTERSTITIAL LUNG DISEASE
     Dosage: UNKNOWN
     Dates: start: 20210621

REACTIONS (12)
  - Diarrhoea [Unknown]
  - Diarrhoea [Recovered/Resolved]
  - Nausea [Recovered/Resolved]
  - Therapeutic response unexpected [Unknown]
  - Dysgeusia [Unknown]
  - Weight decreased [Unknown]
  - Weight increased [Unknown]
  - Intentional dose omission [Unknown]
  - Vomiting [Unknown]
  - Dizziness [Unknown]
  - Cough decreased [Unknown]
  - Nausea [Unknown]
